FAERS Safety Report 15653754 (Version 2)
Quarter: 2018Q4

REPORT INFORMATION
  Report Type: Spontaneous
  Country: US (occurrence: US)
  Receive Date: 20181124
  Receipt Date: 20181208
  Transmission Date: 20190205
  Serious: No
  Sender: FDA-Public Use
  Company Number: US-JNJFOC-20181112556

PATIENT
  Sex: Female

DRUGS (1)
  1. STELARA [Suspect]
     Active Substance: USTEKINUMAB
     Indication: CROHN^S DISEASE
     Route: 058
     Dates: start: 20181113

REACTIONS (3)
  - Product dose omission [Unknown]
  - Heart rate increased [Unknown]
  - Mydriasis [Unknown]

NARRATIVE: CASE EVENT DATE: 20181106
